FAERS Safety Report 4728500-5 (Version None)
Quarter: 2005Q3

REPORT INFORMATION
  Report Type: 
  Country: None (occurrence: None)
  Receive Date: 20050729
  Receipt Date: 20041208
  Transmission Date: 20060218
  Serious: No
  Sender: FDA-Public Use
  Company Number: US-GLAXOSMITHKLINE-A0536613A

PATIENT
  Age: 85 Year
  Sex: Male

DRUGS (3)
  1. ZANTAC [Suspect]
     Indication: DUODENAL ULCER
     Dosage: 150MG PER DAY
     Route: 048
  2. ALDOMET [Concomitant]
  3. METAMUCIL [Concomitant]

REACTIONS (3)
  - BLOOD PRESSURE INCREASED [None]
  - INSOMNIA [None]
  - RASH [None]
